FAERS Safety Report 9201518 (Version 1)
Quarter: 2013Q2

REPORT INFORMATION
  Report Type: Spontaneous
  Country: US (occurrence: US)
  Receive Date: 20130401
  Receipt Date: 20130401
  Transmission Date: 20140414
  Serious: Yes (Other)
  Sender: FDA-Public Use
  Company Number: US-PFIZER INC-2013103109

PATIENT
  Age: 52 Year
  Sex: Male
  Weight: 83.9 kg

DRUGS (1)
  1. LYRICA [Suspect]
     Indication: PAIN
     Dosage: 150 MG, 3X/DAY

REACTIONS (1)
  - Blood testosterone decreased [Unknown]
